FAERS Safety Report 6189249-8 (Version None)
Quarter: 2009Q2

REPORT INFORMATION
  Report Type: 
  Country: None (occurrence: None)
  Receive Date: 20090513
  Receipt Date: 20090506
  Transmission Date: 20091009
  Serious: Yes (Hospitalization, Other)
  Sender: FDA-Public Use
  Company Number: PHHY2009CH17410

PATIENT
  Age: 53 Year
  Sex: Male

DRUGS (7)
  1. DIOVAN [Suspect]
     Indication: MYOCARDIAL ISCHAEMIA
     Dosage: 80 MG, QD
     Dates: end: 20081028
  2. TORASIS (NGX) [Suspect]
     Indication: MYOCARDIAL ISCHAEMIA
     Dosage: 10 MG, QD
     Dates: end: 20081028
  3. BRUFEN ^ABBOTT^ [Suspect]
     Dosage: UNK
     Dates: end: 20081028
  4. SORTIS ^GOEDECKE^ [Concomitant]
     Dosage: 1 DF, QD
  5. METFIN [Concomitant]
     Dosage: 1000 MG, QD
  6. NITRODERM [Concomitant]
     Dosage: 1 DF, QD
  7. ASPIRIN [Concomitant]
     Dosage: 100 MG, QD

REACTIONS (4)
  - ABDOMINAL PAIN [None]
  - CHEST PAIN [None]
  - CONSTIPATION [None]
  - RENAL FAILURE ACUTE [None]
